FAERS Safety Report 12474705 (Version 2)
Quarter: 2016Q2

REPORT INFORMATION
  Report Type: Spontaneous
  Country: IT (occurrence: IT)
  Receive Date: 20160617
  Receipt Date: 20160630
  Transmission Date: 20160815
  Serious: Yes (Hospitalization)
  Sender: FDA-Public Use
  Company Number: IT-009507513-1606ITA006631

PATIENT
  Age: 71 Year
  Sex: Female
  Weight: 50 kg

DRUGS (6)
  1. GEMCITABINE HYDROCHLORIDE. [Suspect]
     Active Substance: GEMCITABINE HYDROCHLORIDE
     Indication: LUNG ADENOCARCINOMA METASTATIC
     Dosage: TOTAL 1800 MG
     Route: 042
     Dates: start: 20160523, end: 20160523
  2. VERAPAMIL HYDROCHLORIDE. [Concomitant]
     Active Substance: VERAPAMIL HYDROCHLORIDE
     Dosage: UNK
     Route: 048
  3. DAPAROX [Concomitant]
     Active Substance: PAROXETINE HYDROCHLORIDE
     Dosage: UNK
  4. CISPLATIN. [Suspect]
     Active Substance: CISPLATIN
     Indication: LUNG ADENOCARCINOMA METASTATIC
     Dosage: TOTAL 90 MG
     Route: 042
     Dates: start: 20160523, end: 20160523
  5. ASPIRINETTA [Concomitant]
     Active Substance: ASPIRIN
     Dosage: UNK MG, UNK
  6. IVEMEND [Suspect]
     Active Substance: FOSAPREPITANT DIMEGLUMINE
     Indication: LUNG ADENOCARCINOMA METASTATIC
     Dosage: 150 MG, TOTAL
     Route: 042
     Dates: start: 20160523, end: 20160523

REACTIONS (3)
  - Confusional state [Recovered/Resolved]
  - Oliguria [Recovered/Resolved]
  - Respiratory failure [Recovered/Resolved]

NARRATIVE: CASE EVENT DATE: 20160524
